FAERS Safety Report 8271195-7 (Version None)
Quarter: 2012Q2

REPORT INFORMATION
  Report Type: 
  Country: None (occurrence: None)
  Receive Date: 20120410
  Receipt Date: 20120328
  Transmission Date: 20120825
  Serious: Yes (Other)
  Sender: FDA-Public Use
  Company Number: US-ELI_LILLY_AND_COMPANY-US201203008953

PATIENT
  Age: 15 Year
  Sex: Female

DRUGS (2)
  1. STRATTERA [Suspect]
     Dosage: 40 MG, UNK
  2. STRATTERA [Suspect]
     Dosage: 25 MG, UNK

REACTIONS (4)
  - PHARYNGEAL OEDEMA [None]
  - DYSPNOEA [None]
  - OROPHARYNGEAL PAIN [None]
  - HEADACHE [None]
